FAERS Safety Report 16099760 (Version 1)
Quarter: 2019Q1

REPORT INFORMATION
  Report Type: Spontaneous
  Country: GB (occurrence: GB)
  Receive Date: 20190218
  Receipt Date: 20190218
  Transmission Date: 20190418
  Serious: Yes (Disabling)
  Sender: FDA-Public Use
  Company Number: None

PATIENT
  Age: 33 Year
  Sex: Male
  Weight: 69 kg

DRUGS (1)
  1. TRIXELIN ACNE AND SCAR MAXIMUM REVERSAL  CONCENTRATE [Suspect]
     Active Substance: ACETYL HEXAPEPTIDE-8\DARUTOSIDE\HYALURONIC ACID
     Indication: SCAR
     Route: 061
     Dates: start: 20190107, end: 20190208

REACTIONS (1)
  - Skin discolouration [None]

NARRATIVE: CASE EVENT DATE: 20190211
